FAERS Safety Report 6187789-9 (Version None)
Quarter: 2009Q2

REPORT INFORMATION
  Report Type: 
  Country: None (occurrence: None)
  Receive Date: 20090511
  Receipt Date: 20090511
  Transmission Date: 20091009
  Serious: Yes (Other)
  Sender: FDA-Public Use
  Company Number: None

PATIENT
  Sex: Female
  Weight: 62.5964 kg

DRUGS (2)
  1. SPIRIVA [Suspect]
     Indication: CHRONIC OBSTRUCTIVE PULMONARY DISEASE
     Dosage: INHALE 1 CAPSULE DAILY MOUTH
     Route: 048
     Dates: start: 20080301, end: 20090401
  2. SPIRIVA [Suspect]
     Indication: LUNG NEOPLASM MALIGNANT
     Dosage: INHALE 1 CAPSULE DAILY MOUTH
     Route: 048
     Dates: start: 20080301, end: 20090401

REACTIONS (3)
  - DYSPHONIA [None]
  - MEDICAL DEVICE COMPLICATION [None]
  - RASH PRURITIC [None]
